FAERS Safety Report 15225974 (Version 1)
Quarter: 2018Q3

REPORT INFORMATION
  Report Type: Spontaneous
  Country: US (occurrence: US)
  Receive Date: 20180801
  Receipt Date: 20180801
  Transmission Date: 20181010
  Serious: Yes (Hospitalization, Other)
  Sender: FDA-Public Use
  Company Number: US-ZYDUS-020991

PATIENT
  Age: 22 Year
  Sex: Female

DRUGS (2)
  1. AZATHIOPRINE. [Suspect]
     Active Substance: AZATHIOPRINE
     Indication: CROHN^S DISEASE
     Route: 065
  2. ADALIMUMAB [Suspect]
     Active Substance: ADALIMUMAB
     Indication: CROHN^S DISEASE
     Route: 065

REACTIONS (18)
  - Thrombocytopenia [Unknown]
  - Pyrexia [Unknown]
  - Dyspnoea [Unknown]
  - Blood fibrinogen decreased [Unknown]
  - Hypotension [Unknown]
  - Staphylococcal infection [Unknown]
  - Paralysis [Unknown]
  - Hypoxia [Unknown]
  - Disseminated intravascular coagulation [Unknown]
  - Pulmonary embolism [Unknown]
  - Multiple organ dysfunction syndrome [Unknown]
  - Fungaemia [Unknown]
  - Histiocytosis haematophagic [Unknown]
  - Histoplasmosis [Unknown]
  - Pneumonia [Unknown]
  - Anaemia [Unknown]
  - Acute respiratory distress syndrome [Unknown]
  - Serum ferritin increased [Unknown]
